FAERS Safety Report 18783704 (Version 4)
Quarter: 2022Q2

REPORT INFORMATION
  Report Type: Spontaneous
  Country: US (occurrence: US)
  Receive Date: 20210125
  Receipt Date: 20220422
  Transmission Date: 20220720
  Serious: Yes (Other)
  Sender: FDA-Public Use
  Company Number: NVSC2021US015079

PATIENT
  Weight: 14 kg

DRUGS (1)
  1. KYMRIAH [Suspect]
     Active Substance: TISAGENLECLEUCEL
     Indication: Acute lymphocytic leukaemia
     Dosage: 10 ML, ONCE/SINGLE
     Route: 042
     Dates: start: 20200824, end: 20200824

REACTIONS (2)
  - Post-depletion B-cell recovery [Unknown]
  - Drug ineffective [Unknown]
